FAERS Safety Report 17015327 (Version 1)
Quarter: 2019Q4

REPORT INFORMATION
  Report Type: Spontaneous
  Country: US (occurrence: US)
  Receive Date: 20191108
  Receipt Date: 20191108
  Transmission Date: 20200122
  Serious: Yes (Hospitalization)
  Sender: FDA-Public Use
  Company Number: None

PATIENT
  Age: 67 Year
  Sex: Male

DRUGS (10)
  1. CYCLOBENZAPRINE. [Concomitant]
     Active Substance: CYCLOBENZAPRINE
  2. TACROLIMUS. [Concomitant]
     Active Substance: TACROLIMUS
  3. MYCOPHENOLIC [Suspect]
     Active Substance: MYCOPHENOLIC ACID
     Route: 048
  4. LIPITOR [Concomitant]
     Active Substance: ATORVASTATIN CALCIUM
  5. MAGNESIUM [Concomitant]
     Active Substance: MAGNESIUM
  6. NORVASC [Concomitant]
     Active Substance: AMLODIPINE BESYLATE
  7. NEURONTIN [Concomitant]
     Active Substance: GABAPENTIN
  8. ABILIFY [Concomitant]
     Active Substance: ARIPIPRAZOLE
  9. AMLODIPINE [Concomitant]
     Active Substance: AMLODIPINE BESYLATE
  10. PROTONIX [Concomitant]
     Active Substance: PANTOPRAZOLE SODIUM

REACTIONS (2)
  - Joint swelling [None]
  - Blood creatine increased [None]
